FAERS Safety Report 25483018 (Version 1)
Quarter: 2025Q2

REPORT INFORMATION
  Report Type: Spontaneous
  Country: US (occurrence: None)
  Receive Date: 20250626
  Receipt Date: 20250626
  Transmission Date: 20250716
  Serious: Yes (Hospitalization)
  Sender: FDA-CTU
  Company Number: None

PATIENT
  Age: 57 Year
  Sex: Female

DRUGS (11)
  1. SIMPONI [Suspect]
     Active Substance: GOLIMUMAB
     Indication: Rheumatoid arthritis
     Dosage: FREQUENCY : MONTHLY;?
     Route: 058
     Dates: start: 20220510
  2. FOLIC ACID [Concomitant]
     Active Substance: FOLIC ACID
  3. METHOTREXATE [Concomitant]
     Active Substance: METHOTREXATE
  4. ALBUTEROL HFA INH [Concomitant]
  5. ASTELIN NASAL SPR [Concomitant]
  6. BREO ELLIPTA [Concomitant]
     Active Substance: FLUTICASONE FUROATE\VILANTEROL TRIFENATATE
  7. GABAPENTIN [Concomitant]
     Active Substance: GABAPENTIN
  8. OMEPRAZOLE [Concomitant]
     Active Substance: OMEPRAZOLE
  9. PREGABALIN [Concomitant]
     Active Substance: PREGABALIN
  10. SERTRALINE [Concomitant]
     Active Substance: SERTRALINE HYDROCHLORIDE
  11. VITAMIN D LIQ SFTGL [Concomitant]

REACTIONS (1)
  - Pneumonia [None]

NARRATIVE: CASE EVENT DATE: 20250604
